FAERS Safety Report 5975044-9 (Version None)
Quarter: 2008Q4

REPORT INFORMATION
  Report Type: 
  Country: None (occurrence: None)
  Receive Date: 20081128
  Receipt Date: 20081121
  Transmission Date: 20090506
  Serious: Yes (Other)
  Sender: FDA-Public Use
  Company Number: ADR2662008

PATIENT
  Sex: Female

DRUGS (1)
  1. SERTRA-Q (SERTRALINE) [Suspect]
     Indication: DEPRESSION
     Dosage: 50 MG
     Route: 048

REACTIONS (4)
  - ARRHYTHMIA [None]
  - CHEST DISCOMFORT [None]
  - DIZZINESS [None]
  - PRURITUS [None]
